FAERS Safety Report 8721958 (Version 3)
Quarter: 2012Q4

REPORT INFORMATION
  Report Type: 
  Country: FR (occurrence: FR)
  Receive Date: 20120814
  Receipt Date: 20120927
  Transmission Date: 20130627
  Serious: Yes (Death, Hospitalization, Other)
  Sender: FDA-Public Use
  Company Number: FR-GENZYME-THYM-1003362

PATIENT
  Age: 29 None
  Sex: Female

DRUGS (5)
  1. THYMOGLOBULINE [Suspect]
     Indication: PRODUCT USED FOR UNKNOWN INDICATION
     Dosage: 2.5 mg, UNK
     Route: 042
     Dates: start: 20120604, end: 20120606
  2. ENDOXAN [Suspect]
     Indication: PRODUCT USED FOR UNKNOWN INDICATION
     Dosage: 3900 mg, UNK
     Route: 042
     Dates: start: 20120603, end: 20120604
  3. METHOTREXATE [Suspect]
     Indication: PRODUCT USED FOR UNKNOWN INDICATION
     Dosage: 26.5 mg, UNK
     Route: 065
     Dates: start: 20120608
  4. METHOTREXATE [Suspect]
     Dosage: 17.6 mg, UNK
     Route: 065
     Dates: start: 20120610
  5. METHOTREXATE [Suspect]
     Dosage: 17.6 mg, UNK
     Route: 065
     Dates: start: 20120613

REACTIONS (13)
  - Respiratory failure [Fatal]
  - Hepatomegaly [Recovered/Resolved]
  - Hyperthermia [Unknown]
  - Renal failure [Not Recovered/Not Resolved]
  - Oliguria [Not Recovered/Not Resolved]
  - Fluid retention [Unknown]
  - Weight increased [Unknown]
  - Blood bilirubin increased [Unknown]
  - Thrombocytopenia [Unknown]
  - Pneumonia bacterial [Unknown]
  - Staphylococcal infection [Unknown]
  - Hepatic pain [Unknown]
  - Bicytopenia [Not Recovered/Not Resolved]
